FAERS Safety Report 8418595-X (Version None)
Quarter: 2012Q2

REPORT INFORMATION
  Report Type: 
  Country: None (occurrence: None)
  Receive Date: 20120607
  Receipt Date: 20120528
  Transmission Date: 20120825
  Serious: Yes (Other)
  Sender: FDA-Public Use
  Company Number: JP-JNJFOC-20120600174

PATIENT
  Age: 72 Year
  Sex: Male

DRUGS (5)
  1. SIMPONI [Suspect]
     Indication: PRODUCT USED FOR UNKNOWN INDICATION
     Route: 058
     Dates: start: 20120522
  2. METHOTREXATE [Concomitant]
     Route: 048
     Dates: start: 20120425
  3. SIMPONI [Suspect]
     Route: 058
     Dates: start: 20120425
  4. ISONIAZID [Concomitant]
     Route: 048
     Dates: start: 20120425
  5. CELEBREX [Concomitant]
     Route: 048
     Dates: start: 20120425

REACTIONS (1)
  - LIP OEDEMA [None]
